FAERS Safety Report 8852043 (Version 3)
Quarter: 2013Q3

REPORT INFORMATION
  Report Type: Spontaneous
  Country: US (occurrence: US)
  Receive Date: 20121022
  Receipt Date: 20130920
  Transmission Date: 20140515
  Serious: Yes (Hospitalization, Other)
  Sender: FDA-Public Use
  Company Number: US-JNJFOC-20111105026

PATIENT
  Age: 41 Year
  Sex: Female

DRUGS (10)
  1. TYLENOL [Suspect]
     Indication: MIGRAINE
     Route: 048
  2. TYLENOL [Suspect]
     Indication: ABDOMINAL PAIN
     Route: 048
  3. EXTRA STRENGTH TYLENOL PM [Suspect]
     Indication: MIGRAINE
     Route: 065
  4. EXTRA STRENGTH TYLENOL PM [Suspect]
     Indication: ABDOMINAL PAIN
     Route: 065
  5. ACETAMINOPHEN [Suspect]
     Indication: PRODUCT USED FOR UNKNOWN INDICATION
     Route: 048
  6. THERAFLU [Suspect]
     Indication: PRODUCT USED FOR UNKNOWN INDICATION
     Route: 048
     Dates: start: 200910, end: 200910
  7. DEPAKOTE [Suspect]
     Indication: DEPRESSION
     Route: 065
  8. DEPAKOTE [Suspect]
     Indication: ANXIETY
     Route: 065
  9. NYQUIL [Suspect]
     Indication: MIGRAINE
     Route: 065
  10. NYQUIL [Suspect]
     Indication: ABDOMINAL PAIN UPPER
     Route: 065

REACTIONS (12)
  - Toxicity to various agents [Recovering/Resolving]
  - Acute hepatic failure [Recovering/Resolving]
  - Coagulopathy [Recovering/Resolving]
  - Cholangitis [Recovering/Resolving]
  - Hypoglycaemia [Recovering/Resolving]
  - Metabolic acidosis [Recovering/Resolving]
  - Accidental overdose [Recovering/Resolving]
  - Encephalopathy [Recovering/Resolving]
  - Immunosuppression [Unknown]
  - Weight decreased [Unknown]
  - Complications of transplanted liver [Unknown]
  - Relapsing fever [Recovering/Resolving]
